FAERS Safety Report 10065963 (Version 1)
Quarter: 2014Q2

REPORT INFORMATION
  Report Type: Spontaneous
  Country: US (occurrence: US)
  Receive Date: 20140408
  Receipt Date: 20140408
  Transmission Date: 20141212
  Serious: Yes (Hospitalization)
  Sender: FDA-Public Use
  Company Number: US-ASTELLAS-2014US001049

PATIENT
  Age: 74 Year
  Sex: Male

DRUGS (1)
  1. MYRBETRIQ [Suspect]
     Indication: PROSTATE CANCER
     Dosage: 50 MG, UID/QD
     Route: 048
     Dates: start: 20130911

REACTIONS (2)
  - Off label use [Unknown]
  - Dizziness [Unknown]
